FAERS Safety Report 11924533 (Version 1)
Quarter: 2016Q1

REPORT INFORMATION
  Report Type: Spontaneous
  Country: GB (occurrence: GB)
  Receive Date: 20160118
  Receipt Date: 20160118
  Transmission Date: 20160526
  Serious: Yes (Life-Threatening, Disabling, Other)
  Sender: FDA-Public Use
  Company Number: GB-GE HEALTHCARE MEDICAL DIAGNOSTICS-OMPQ-PR-1601S-0029

PATIENT
  Age: 49 Year
  Sex: Male
  Weight: 111.13 kg

DRUGS (16)
  1. AMOXICILLIN. [Concomitant]
     Active Substance: AMOXICILLIN
  2. FEXOFENADINE HYDROCHLORIDE. [Concomitant]
     Active Substance: FEXOFENADINE HYDROCHLORIDE
  3. CODEINE PHOSPHATE [Concomitant]
     Active Substance: CODEINE PHOSPHATE
  4. KEPPRA [Concomitant]
     Active Substance: LEVETIRACETAM
  5. BECLOMETASONE DIPROPIONATE [Concomitant]
     Active Substance: BECLOMETHASONE DIPROPIONATE
  6. OMEPRAZOLE. [Concomitant]
     Active Substance: OMEPRAZOLE
  7. OMNIPAQUE [Suspect]
     Active Substance: IOHEXOL
     Indication: PRODUCT USED FOR UNKNOWN INDICATION
     Route: 051
     Dates: start: 20151215, end: 20151215
  8. PIRITON [Concomitant]
     Active Substance: CHLORPHENIRAMINE MALEATE
  9. OMNIPAQUE [Suspect]
     Active Substance: IOHEXOL
     Indication: DIAGNOSTIC PROCEDURE
  10. BETNOVATE [Concomitant]
     Active Substance: BETAMETHASONE
  11. MOMETASONE FUROATE. [Concomitant]
     Active Substance: MOMETASONE FUROATE
  12. SOLPADEINE [Concomitant]
  13. CO-AMOXICLAV [Concomitant]
     Active Substance: AMOXICILLIN\CLAVULANIC ACID
  14. ESOMEPRAZOLE [Concomitant]
     Active Substance: ESOMEPRAZOLE
  15. PARACETAMOL [Concomitant]
     Active Substance: ACETAMINOPHEN
  16. CIPROXIN [Concomitant]
     Active Substance: CIPROFLOXACIN

REACTIONS (9)
  - Urticaria [Unknown]
  - Decreased appetite [Unknown]
  - Blister [Unknown]
  - Skin exfoliation [Unknown]
  - Nausea [Unknown]
  - Peripheral swelling [Unknown]
  - Skin discolouration [Unknown]
  - Rash generalised [Recovered/Resolved]
  - Hypersensitivity [Unknown]

NARRATIVE: CASE EVENT DATE: 20151215
